FAERS Safety Report 9000130 (Version 1)
Quarter: 2013Q1

REPORT INFORMATION
  Report Type: Spontaneous
  Country: FR (occurrence: FR)
  Receive Date: 20130102
  Receipt Date: 20130102
  Transmission Date: 20140127
  Serious: Yes (Hospitalization)
  Sender: FDA-Public Use
  Company Number: FR-SANOFI-AVENTIS-2012SA094132

PATIENT
  Age: 70 Year
  Sex: Female

DRUGS (9)
  1. TAXOTERE [Suspect]
     Indication: INVASIVE DUCTAL BREAST CARCINOMA
     Dosage: CYCLE 1-8
     Route: 042
     Dates: start: 200304, end: 200308
  2. XELODA [Suspect]
     Indication: INVASIVE DUCTAL BREAST CARCINOMA
     Dosage: 150 MG TWICE DAILY FOR 14 DAYS EVERY CYCLE
     Route: 048
     Dates: start: 20110624, end: 20120910
  3. VINORELBINE [Suspect]
     Indication: INVASIVE DUCTAL BREAST CARCINOMA
     Dosage: UNKNOWN DOSAGE GIVEN ON DAY 1 AND DAY 8 EVERY CYCLE
     Route: 048
     Dates: start: 20110415, end: 20120910
  4. FULVESTRANT [Suspect]
     Indication: INVASIVE DUCTAL BREAST CARCINOMA
     Route: 030
     Dates: start: 20121001
  5. FARMORUBICINE [Suspect]
     Indication: INVASIVE DUCTAL BREAST CARCINOMA
     Route: 042
     Dates: start: 200304, end: 200308
  6. TAMOXIFEN [Concomitant]
     Indication: INVASIVE DUCTAL BREAST CARCINOMA
     Route: 048
     Dates: start: 200312, end: 200402
  7. ANASTROZOLE [Concomitant]
     Indication: INVASIVE DUCTAL BREAST CARCINOMA
     Route: 048
     Dates: start: 200402, end: 200704
  8. EXEMESTANE [Concomitant]
     Indication: INVASIVE DUCTAL BREAST CARCINOMA
     Route: 048
     Dates: start: 200704, end: 201010
  9. PAMIDRONATE DISODIUM [Concomitant]
     Indication: BONE DENSITY DECREASED
     Route: 042
     Dates: start: 201010

REACTIONS (5)
  - Cardiomyopathy [Recovering/Resolving]
  - Cardiac failure [Recovering/Resolving]
  - Ejection fraction decreased [Recovering/Resolving]
  - Dyspnoea exertional [Recovering/Resolving]
  - Acute respiratory distress syndrome [Recovering/Resolving]
